FAERS Safety Report 8601388-8 (Version None)
Quarter: 2012Q3

REPORT INFORMATION
  Report Type: 
  Country: None (occurrence: None)
  Receive Date: 20120817
  Receipt Date: 20120814
  Transmission Date: 20120928
  Serious: Yes (Other)
  Sender: FDA-Public Use
  Company Number: NO-PFIZER INC-2012198207

PATIENT
  Age: 18 Year
  Sex: Female

DRUGS (2)
  1. EFFEXOR [Suspect]
     Dosage: 150 MG, UNK
  2. EFFEXOR [Suspect]
     Dosage: 75 MG, UNK
     Dates: start: 20120720

REACTIONS (2)
  - HAEMORRHAGE [None]
  - CONTUSION [None]
